FAERS Safety Report 14679897 (Version 2)
Quarter: 2018Q2

REPORT INFORMATION
  Report Type: Spontaneous
  Country: SI (occurrence: SI)
  Receive Date: 20180326
  Receipt Date: 20180418
  Transmission Date: 20180711
  Serious: Yes (Life-Threatening, Hospitalization, Other)
  Sender: FDA-Public Use
  Company Number: SI-BAYER-2018-051157

PATIENT
  Sex: Female

DRUGS (4)
  1. ADEMPAS [Suspect]
     Active Substance: RIOCIGUAT
     Indication: PULMONARY HYPERTENSION
     Dosage: 1.5 MG, Q8HR
     Route: 048
     Dates: start: 20170518
  2. ADEMPAS [Suspect]
     Active Substance: RIOCIGUAT
     Indication: PULMONARY HYPERTENSION
     Dosage: 2 MG, Q8HR
     Route: 048
     Dates: start: 20170601
  3. ADEMPAS [Suspect]
     Active Substance: RIOCIGUAT
     Indication: PULMONARY HYPERTENSION
     Dosage: 1 MG, Q8HR
     Route: 048
     Dates: start: 20170504, end: 20170621
  4. ADEMPAS [Suspect]
     Active Substance: RIOCIGUAT
     Indication: PULMONARY HYPERTENSION
     Dosage: 1.5 MG, Q8HR
     Route: 048
     Dates: start: 20170616

REACTIONS (3)
  - Dehydration [None]
  - Acute kidney injury [None]
  - Renal failure [Recovering/Resolving]

NARRATIVE: CASE EVENT DATE: 20170621
